FAERS Safety Report 10739824 (Version 1)
Quarter: 2015Q1

REPORT INFORMATION
  Report Type: Spontaneous
  Country: US (occurrence: US)
  Receive Date: 20150127
  Receipt Date: 20150127
  Transmission Date: 20150721
  Serious: Yes (Other)
  Sender: FDA-Public Use
  Company Number: US-JNJFOC-20150111539

PATIENT
  Age: 60 Year
  Sex: Male

DRUGS (3)
  1. TYLENOL EXTRA STRENGTH [Suspect]
     Active Substance: ACETAMINOPHEN
     Indication: OESOPHAGEAL PAIN
     Dosage: 12 TO 20 DOSES IN TOTAL
     Route: 048
     Dates: start: 20100305, end: 20100305
  2. HYDROCODONE [Suspect]
     Active Substance: HYDROCODONE
     Indication: OESOPHAGEAL PAIN
     Route: 048
     Dates: start: 20100305, end: 20100305
  3. TYLENOL REGULAR STRENGTH [Suspect]
     Active Substance: ACETAMINOPHEN
     Indication: OESOPHAGEAL PAIN
     Dosage: 12 TO 20 DOSES IN TOTAL
     Route: 048
     Dates: start: 20100305, end: 20100305

REACTIONS (5)
  - Intentional overdose [Unknown]
  - Loss of consciousness [Recovered/Resolved]
  - Feeling hot [Unknown]
  - Hyperhidrosis [Unknown]
  - Tremor [Unknown]

NARRATIVE: CASE EVENT DATE: 20100305
